FAERS Safety Report 6086630-2 (Version None)
Quarter: 2009Q1

REPORT INFORMATION
  Report Type: 
  Country: None (occurrence: None)
  Receive Date: 20090213
  Receipt Date: 20090128
  Transmission Date: 20090719
  Serious: Yes (Other)
  Sender: FDA-Public Use
  Company Number: B0558285A

PATIENT
  Sex: 0

DRUGS (4)
  1. BUSULPHAN (FORMULATION UNKNOWN) (GENERIC) [Suspect]
     Indication: BONE MARROW TRANSPLANT
     Dosage: 3.2 MG/KG PER DAY / INTRAVENOUS
     Route: 042
  2. CLOFARABINE (FORMULATION UNKNOWN) (CLOFARABINE) [Suspect]
     Indication: BONE MARROW TRANSPLANT
     Dosage: PER DAY / INTRAVENOUS /
     Route: 042
  3. DEXAMETHASONE [Concomitant]
  4. TACROLIMUS [Concomitant]

REACTIONS (1)
  - CONVULSION [None]
